FAERS Safety Report 15881741 (Version 2)
Quarter: 2019Q2

REPORT INFORMATION
  Report Type: Report from Study
  Country: US (occurrence: US)
  Receive Date: 20190128
  Receipt Date: 20190401
  Transmission Date: 20190711
  Serious: Yes (Hospitalization)
  Sender: FDA-Public Use
  Company Number: US-SHIRE-US201902798

PATIENT
  Sex: Female
  Weight: 45.35 kg

DRUGS (1)
  1. GATTEX [Suspect]
     Active Substance: TEDUGLUTIDE\WATER
     Indication: PRODUCT USED FOR UNKNOWN INDICATION
     Dosage: .2000 (UNIT UNKNOWN)
     Route: 065
     Dates: start: 20180312

REACTIONS (8)
  - Vomiting [Unknown]
  - Gastrointestinal disorder [Unknown]
  - Diarrhoea [Recovering/Resolving]
  - Blood potassium decreased [Recovered/Resolved]
  - Weight decreased [Recovering/Resolving]
  - Obstruction [Recovered/Resolved]
  - Blood magnesium decreased [Recovered/Resolved]
  - Inappropriate schedule of product administration [Unknown]
